FAERS Safety Report 8854638 (Version 5)
Quarter: 2012Q4

REPORT INFORMATION
  Report Type: 
  Country: JP (occurrence: JP)
  Receive Date: 20121023
  Receipt Date: 20121120
  Transmission Date: 20130627
  Serious: Yes (Death, Other)
  Sender: FDA-Public Use
  Company Number: JP-PFIZER INC-2012260974

PATIENT
  Age: 92 Year
  Sex: Male

DRUGS (5)
  1. FLUCAM [Suspect]
     Indication: PAIN RELIEF
     Dosage: 13.5 mg, 1x/day
     Route: 048
     Dates: start: 20121004
  2. MICAMLO COMBINATION TABLETS AP [Concomitant]
     Indication: HYPERTENSION
     Dosage: telmisartan 40 mg/amlodipine besilate 5 mg
     Route: 048
     Dates: start: 20120413, end: 20121010
  3. MAINTATE [Concomitant]
     Indication: HYPERTENSION
     Dosage: 2.5 mg, 1x/day
     Route: 048
     Dates: start: 20120611, end: 20120723
  4. MAINTATE [Concomitant]
     Dosage: 5 mg, 1x/day
     Route: 048
     Dates: start: 20120724, end: 20120822
  5. MAINTATE [Concomitant]
     Dosage: 2.5 mg, 1x/day
     Route: 048
     Dates: start: 20120823, end: 20120920

REACTIONS (9)
  - Renal failure acute [Fatal]
  - Dehydration [Fatal]
  - Gastroenteritis [Fatal]
  - Abasia [None]
  - Decreased appetite [None]
  - Wheelchair user [None]
  - Blood pressure decreased [None]
  - Hypotension [None]
  - Blood glucose increased [None]
